FAERS Safety Report 23052930 (Version 1)
Quarter: 2023Q4

REPORT INFORMATION
  Report Type: Spontaneous
  Country: NP (occurrence: NP)
  Receive Date: 20231011
  Receipt Date: 20231011
  Transmission Date: 20240110
  Serious: Yes (Death, Other)
  Sender: FDA-Public Use
  Company Number: NP-BRISTOL-MYERS SQUIBB COMPANY-2023-143208

PATIENT
  Age: 37 Year
  Sex: Female

DRUGS (1)
  1. SPRYCEL [Suspect]
     Active Substance: DASATINIB
     Indication: Chronic myeloid leukaemia
     Dosage: 2 X 50MG TABLETS

REACTIONS (1)
  - Death [Fatal]

NARRATIVE: CASE EVENT DATE: 20230905
